FAERS Safety Report 13374646 (Version 1)
Quarter: 2017Q1

REPORT INFORMATION
  Report Type: Spontaneous
  Country: US (occurrence: US)
  Receive Date: 20170327
  Receipt Date: 20170327
  Transmission Date: 20170429
  Serious: Yes (Other)
  Sender: FDA-Public Use
  Company Number: US-BAYER-2017-056796

PATIENT
  Age: 27 Year
  Sex: Female

DRUGS (1)
  1. MIRENA [Suspect]
     Active Substance: LEVONORGESTREL
     Indication: CONTRACEPTION
     Dosage: 20 MCG/24HR, CONT
     Route: 015

REACTIONS (8)
  - Abdominal pain [None]
  - Medical device pain [None]
  - Device use issue [None]
  - Device breakage [None]
  - Genital burning sensation [None]
  - Genital infection fungal [None]
  - Genital discomfort [None]
  - Genital haemorrhage [None]
